FAERS Safety Report 6784662-X (Version None)
Quarter: 2010Q2

REPORT INFORMATION
  Report Type: 
  Country: None (occurrence: None)
  Receive Date: 20100622
  Receipt Date: 20100614
  Transmission Date: 20101027
  Serious: Yes (Hospitalization)
  Sender: FDA-Public Use
  Company Number: B0661742A

PATIENT
  Sex: Female

DRUGS (3)
  1. AMOXICILLIN AND CLAVULANATE POTASSIUM [Suspect]
     Indication: PSEUDOMONAS INFECTION
     Route: 048
     Dates: start: 20100602, end: 20100602
  2. LEVOTHYROXINE SODIUM [Concomitant]
     Dosage: 1TAB PER DAY
     Route: 048
     Dates: start: 20090602
  3. ASPIRIN [Concomitant]
     Dosage: 1TAB PER DAY
     Route: 048
     Dates: start: 20090602

REACTIONS (4)
  - ERYTHEMA [None]
  - OEDEMA [None]
  - PRURITUS [None]
  - URTICARIA [None]
